FAERS Safety Report 15917722 (Version 2)
Quarter: 2019Q1

REPORT INFORMATION
  Report Type: Report from Study
  Country: US (occurrence: US)
  Receive Date: 20190205
  Receipt Date: 20190208
  Transmission Date: 20190417
  Serious: Yes (Death)
  Sender: FDA-Public Use
  Company Number: US-ROCHE-2257913

PATIENT
  Sex: Female

DRUGS (1)
  1. TECENTRIQ [Suspect]
     Active Substance: ATEZOLIZUMAB
     Indication: BREAST CANCER FEMALE
     Route: 042

REACTIONS (4)
  - Breast cancer metastatic [Fatal]
  - Intentional product use issue [Unknown]
  - Off label use [Unknown]
  - Cardio-respiratory arrest [Fatal]
